FAERS Safety Report 8595056-9 (Version None)
Quarter: 2012Q3

REPORT INFORMATION
  Report Type: 
  Country: None (occurrence: None)
  Receive Date: 20120815
  Receipt Date: 20120807
  Transmission Date: 20120928
  Serious: Yes (Other)
  Sender: FDA-Public Use
  Company Number: PL-PFIZER INC-2012197214

PATIENT
  Sex: Female

DRUGS (1)
  1. CORDARONE [Suspect]
     Indication: PRODUCT USED FOR UNKNOWN INDICATION
     Dosage: UNK
     Route: 065

REACTIONS (3)
  - PLACENTAL INSUFFICIENCY [None]
  - AMNIOCENTESIS ABNORMAL [None]
  - THREATENED LABOUR [None]
